FAERS Safety Report 7724888-1 (Version None)
Quarter: 2011Q3

REPORT INFORMATION
  Report Type: 
  Country: None (occurrence: None)
  Receive Date: 20110901
  Receipt Date: 20110824
  Transmission Date: 20111222
  Serious: Yes (Other)
  Sender: FDA-Public Use
  Company Number: BR-MEDIMMUNE-MEDI-0013520

PATIENT
  Sex: Female
  Weight: 8.4 kg

DRUGS (9)
  1. AMOXICILLIN [Concomitant]
     Indication: INFECTION PROPHYLAXIS
  2. BACTRIM [Concomitant]
     Indication: INFECTION PROPHYLAXIS
  3. CEFTRIAXONE SODIUM [Concomitant]
     Route: 030
  4. UNSPECIFIED MEDICATION [Concomitant]
     Indication: INFECTION PROPHYLAXIS
  5. BUDESONIDE [Concomitant]
     Indication: ASTHMA
     Dosage: 2 PUFF (1 PUFF, 1 IN 12 HR)
  6. SYNAGIS [Suspect]
     Route: 030
     Dates: start: 20110621, end: 20110621
  7. CEFTRIAXONE SODIUM [Concomitant]
     Indication: PROPHYLAXIS
     Route: 042
  8. RANITIDINE [Concomitant]
     Dates: start: 20110401
  9. DOMPERIDONE [Concomitant]
     Dates: start: 20110401

REACTIONS (6)
  - PNEUMONIA [None]
  - NAUSEA [None]
  - FATIGUE [None]
  - BRONCHIOLITIS [None]
  - INFLUENZA [None]
  - WHEEZING [None]
